FAERS Safety Report 16749809 (Version 2)
Quarter: 2019Q3

REPORT INFORMATION
  Report Type: Report from Study
  Country: BR (occurrence: BR)
  Receive Date: 20190828
  Receipt Date: 20190902
  Transmission Date: 20191005
  Serious: Yes (Other)
  Sender: FDA-Public Use
  Company Number: PHHY2019BR192910

PATIENT
  Age: 44 Year
  Sex: Female

DRUGS (10)
  1. DIPIRONE [Suspect]
     Active Substance: METAMIZOLE SODIUM
     Indication: PRODUCT USED FOR UNKNOWN INDICATION
     Dosage: UNK UNK, Q12H
     Route: 065
  2. ZOMETA [Suspect]
     Active Substance: ZOLEDRONIC ACID
     Indication: BONE DISORDER
     Dosage: UNK UNK, QMO
     Route: 065
     Dates: start: 20190716
  3. TAMOXIFEN CITRATE. [Suspect]
     Active Substance: TAMOXIFEN CITRATE
     Indication: PRODUCT USED FOR UNKNOWN INDICATION
     Dosage: 20 MG, UNK
     Route: 065
     Dates: start: 20170802
  4. KISQALI [Suspect]
     Active Substance: RIBOCICLIB
     Indication: METASTASES TO BONE
     Dosage: UNK
     Route: 065
     Dates: start: 20190809
  5. LETROZOLE. [Suspect]
     Active Substance: LETROZOLE
     Indication: PRODUCT USED FOR UNKNOWN INDICATION
     Dosage: UNK, AT NIGHT
     Route: 065
     Dates: start: 20190719
  6. KISQALI [Suspect]
     Active Substance: RIBOCICLIB
     Indication: BREAST CANCER METASTATIC
     Dosage: 3 DF, UNK
     Route: 065
     Dates: start: 20190719
  7. DIPIRONE [Suspect]
     Active Substance: METAMIZOLE SODIUM
     Dosage: UNK UNK, Q4H
     Route: 065
  8. DIPIRONE [Suspect]
     Active Substance: METAMIZOLE SODIUM
     Dosage: EVERY 1 HOUR
     Route: 065
  9. DIPIRONE [Suspect]
     Active Substance: METAMIZOLE SODIUM
     Dosage: UNK UNK, Q2H
     Route: 065
  10. DIPIRONE [Suspect]
     Active Substance: METAMIZOLE SODIUM
     Dosage: UNK UNK, Q8H
     Route: 065

REACTIONS (17)
  - Back pain [Unknown]
  - Dysphonia [Unknown]
  - Appetite disorder [Unknown]
  - Groin pain [Unknown]
  - Pain [Unknown]
  - Skin lesion [Unknown]
  - Paraesthesia [Unknown]
  - Back injury [Unknown]
  - Cough [Recovered/Resolved]
  - Nausea [Unknown]
  - Bone lesion [Unknown]
  - Hypokinesia [Recovering/Resolving]
  - Pain in extremity [Recovering/Resolving]
  - Insomnia [Unknown]
  - Dysgeusia [Unknown]
  - Metastases to bone [Unknown]
  - Full blood count decreased [Unknown]

NARRATIVE: CASE EVENT DATE: 2019
